FAERS Safety Report 5464150-3 (Version None)
Quarter: 2007Q3

REPORT INFORMATION
  Report Type: 
  Country: None (occurrence: None)
  Receive Date: 20070921
  Receipt Date: 20070919
  Transmission Date: 20080115
  Serious: Yes (Hospitalization)
  Sender: FDA-Public Use
  Company Number: DE-BOEHRINGER INGELHEIM PHARMACEUTICALS, INC.-2007-DE-04402DE

PATIENT
  Sex: Female

DRUGS (3)
  1. SIFROL [Suspect]
     Route: 048
  2. DOXEPIN 100 [Suspect]
     Route: 048
  3. TILIDIN [Suspect]
     Route: 048

REACTIONS (4)
  - AGITATION [None]
  - HALLUCINATION [None]
  - SOMNOLENCE [None]
  - SPEECH DISORDER [None]
